FAERS Safety Report 7809249-9 (Version None)
Quarter: 2011Q4

REPORT INFORMATION
  Report Type: 
  Country: None (occurrence: None)
  Receive Date: 20111006
  Receipt Date: 20110927
  Transmission Date: 20120403
  Serious: Yes (Hospitalization)
  Sender: FDA-Public Use
  Company Number: 1062068

PATIENT
  Age: 51 Year
  Sex: Male

DRUGS (3)
  1. RAMIPRIL [Concomitant]
  2. METHOTREXATE [Suspect]
     Indication: RHEUMATOID ARTHRITIS
     Dosage: 2.5 MG WEEKLY,
  3. FELODIPINE [Concomitant]

REACTIONS (8)
  - HAEMODYNAMIC INSTABILITY [None]
  - PERITONEAL FIBROSIS [None]
  - ASCITES [None]
  - DRUG INEFFECTIVE [None]
  - AGGRESSION [None]
  - CORONARY ARTERY DISEASE [None]
  - PERICARDIAL EFFUSION [None]
  - ABDOMINAL DISTENSION [None]
